FAERS Safety Report 17072985 (Version 1)
Quarter: 2019Q4

REPORT INFORMATION
  Report Type: Other
  Country: CA (occurrence: CA)
  Receive Date: 20191125
  Receipt Date: 20191125
  Transmission Date: 20200122
  Serious: Yes (Hospitalization)
  Sender: FDA-Public Use
  Company Number: CA-HLSUS-2019-CA-001589

PATIENT
  Age: 25 Year
  Sex: Male

DRUGS (1)
  1. CLOZAPINE. [Suspect]
     Active Substance: CLOZAPINE
     Indication: SCHIZOAFFECTIVE DISORDER
     Dosage: 125MG
     Route: 065

REACTIONS (10)
  - Withdrawal syndrome [Recovered/Resolved]
  - Headache [Recovered/Resolved]
  - Troponin increased [Recovered/Resolved]
  - C-reactive protein increased [Recovered/Resolved]
  - Nausea [Recovered/Resolved]
  - Tachycardia [Recovered/Resolved]
  - Influenza like illness [Recovered/Resolved]
  - Hypotension [Recovered/Resolved]
  - Myocarditis [Recovered/Resolved]
  - Pyrexia [Recovered/Resolved]
